FAERS Safety Report 9065471 (Version 1)
Quarter: 2013Q1

REPORT INFORMATION
  Report Type: Report from Study
  Country: US (occurrence: US)
  Receive Date: 20130130
  Receipt Date: 20130130
  Transmission Date: 20140127
  Serious: No
  Sender: FDA-Public Use
  Company Number: US-ABBOTT-12P-163-0969142-00

PATIENT
  Age: 39 Year
  Sex: Female

DRUGS (10)
  1. HUMIRA 40 MG/0.8 ML PEN [Suspect]
     Indication: RHEUMATOID ARTHRITIS
     Dates: start: 20120717
  2. PRILOSEC [Concomitant]
     Indication: GASTROOESOPHAGEAL REFLUX DISEASE
     Dosage: 40MG DAILY
     Route: 048
  3. WELLBUTRIN [Concomitant]
     Indication: FIBROMYALGIA
     Dosage: 150MG DAILY
  4. WELLBUTRIN [Concomitant]
     Indication: ANXIETY
  5. SERTRALINE [Concomitant]
     Indication: ANXIETY
  6. SERTRALINE [Concomitant]
     Indication: ANXIETY
  7. NORCO [Concomitant]
     Indication: PAIN
     Dosage: 325MG 2 IN ONE DAY OR 3 IN ONE DAY
  8. COUMADIN [Concomitant]
     Indication: THROMBOSIS PROPHYLAXIS
     Dosage: DOSE VARIES BASED ON INR-5 TO 10 DAILY
     Route: 048
  9. COUMADIN [Concomitant]
     Indication: PULMONARY EMBOLISM
  10. FLEXERIL [Concomitant]
     Indication: MUSCLE RELAXANT THERAPY
     Dosage: 10MG UP TO 3 TABLETS Q/DAY

REACTIONS (2)
  - Mood swings [Not Recovered/Not Resolved]
  - Injection site pain [Recovered/Resolved]
